FAERS Safety Report 8986401 (Version 1)
Quarter: 2012Q4

REPORT INFORMATION
  Report Type: 
  Country: US (occurrence: US)
  Receive Date: 20121227
  Receipt Date: 20121227
  Transmission Date: 20130627
  Serious: Yes (Hospitalization, Other)
  Sender: FDA-Public Use
  Company Number: US-SANOFI-AVENTIS-2012SA092017

PATIENT
  Age: 79 Year
  Sex: Female

DRUGS (1)
  1. GLIMEPIRIDE [Suspect]
     Indication: TYPE II DIABETES MELLITUS
     Dosage: each morning
     Route: 065

REACTIONS (3)
  - Coronary artery disease [Unknown]
  - Colitis [Unknown]
  - Abdominal pain upper [Unknown]
